FAERS Safety Report 7763663 (Version 2)
Quarter: 2015Q2

REPORT INFORMATION
  Report Type: Spontaneous
  Country: US (occurrence: US)
  Receive Date: 20110118
  Receipt Date: 20150422
  Transmission Date: 20150821
  Serious: Yes (Hospitalization, Other)
  Sender: FDA-Public Use
  Company Number: US-ROCHE-731226

PATIENT
  Age: 49 Year
  Sex: Male
  Weight: 52.2 kg

DRUGS (1)
  1. ACCUTANE [Suspect]
     Active Substance: ISOTRETINOIN
     Indication: ACNE
     Route: 065
     Dates: start: 1982, end: 1984

REACTIONS (10)
  - Inflammatory bowel disease [Unknown]
  - Insomnia [Unknown]
  - Colitis ulcerative [Unknown]
  - Intestinal haemorrhage [Unknown]
  - Intervertebral disc degeneration [Unknown]
  - Headache [Unknown]
  - Intestinal obstruction [Unknown]
  - Crohn^s disease [Unknown]
  - Gastrointestinal injury [Unknown]
  - Pouchitis [Unknown]

NARRATIVE: CASE EVENT DATE: 1983
